FAERS Safety Report 14195523 (Version 1)
Quarter: 2017Q4

REPORT INFORMATION
  Report Type: Spontaneous
  Country: US (occurrence: None)
  Receive Date: 20171116
  Receipt Date: 20171116
  Transmission Date: 20180321
  Serious: Yes (Other)
  Sender: FDA-Public Use
  Company Number: None

PATIENT
  Age: 33 Year
  Sex: Female
  Weight: 58.97 kg

DRUGS (1)
  1. MIBELAS 24 FE [Suspect]
     Active Substance: ETHINYL ESTRADIOL\NORETHINDRONE ACETATE
     Indication: CONTRACEPTION
     Route: 048
     Dates: start: 201709, end: 20171112

REACTIONS (8)
  - Alopecia [None]
  - Muscle spasms [None]
  - Weight increased [None]
  - Depression [None]
  - Product substitution issue [None]
  - Suicidal ideation [None]
  - Mood swings [None]
  - Menorrhagia [None]

NARRATIVE: CASE EVENT DATE: 201709
